FAERS Safety Report 8350504-4 (Version None)
Quarter: 2012Q2

REPORT INFORMATION
  Report Type: 
  Country: None (occurrence: None)
  Receive Date: 20120510
  Receipt Date: 20120504
  Transmission Date: 20120825
  Serious: Yes (Hospitalization)
  Sender: FDA-Public Use
  Company Number: FR-BAYER-2012-045091

PATIENT
  Age: 81 Year
  Sex: Female

DRUGS (13)
  1. PERINDOPRIL ERBUMINE [Concomitant]
     Dosage: 1 DF, QD
     Route: 048
  2. PRAVASTATIN SODIUM [Concomitant]
     Dosage: 20 MG, QD
     Route: 048
  3. PENTOXIFYLLINE [Suspect]
     Dosage: UNK
     Route: 048
     Dates: start: 20120131, end: 20120205
  4. FLECAINIDE ACETATE [Concomitant]
     Dosage: 1 DF, QD
     Route: 048
  5. PLAVIX [Concomitant]
     Dosage: 75 MG, UNK
     Route: 048
     Dates: end: 20120110
  6. LOVENOX [Concomitant]
     Dosage: UNK
     Route: 058
     Dates: start: 20120112, end: 20120131
  7. RABEPRAZOLE SODIUM [Concomitant]
     Dosage: 1 DF, QD
     Route: 048
  8. LASIX [Concomitant]
     Dosage: 1 DF, BID
     Route: 048
  9. CEFTAZIDIME [Interacting]
     Dosage: 1 G, 5ID
     Route: 042
     Dates: start: 20120131, end: 20120203
  10. NEO-MERCAZOLE TAB [Concomitant]
     Dosage: 1 DF, QD
     Route: 048
  11. CIPROFLOXACIN HYDROCHLORIDE [Interacting]
     Dosage: 500 MG, BID
     Route: 048
     Dates: start: 20120131, end: 20120207
  12. FERROUS FUMARATE [Concomitant]
     Dosage: 1 DF, BID
     Route: 048
  13. BISOPROLOL FUMARATE [Concomitant]
     Dosage: 1 DF, QD
     Route: 048

REACTIONS (4)
  - HAEMOPTYSIS [None]
  - ANAEMIA [None]
  - MELAENA [None]
  - RECTAL HAEMORRHAGE [None]
